FAERS Safety Report 6420554-3 (Version None)
Quarter: 2009Q4

REPORT INFORMATION
  Report Type: 
  Country: None (occurrence: None)
  Receive Date: 20091027
  Receipt Date: 20091015
  Transmission Date: 20100525
  Serious: Yes (Death)
  Sender: FDA-Public Use
  Company Number: 2009AL006764

PATIENT
  Age: 34 Year
  Sex: Male

DRUGS (12)
  1. MIRTAZAPINE [Suspect]
     Dosage: 30 MG; QD; PO
     Route: 048
  2. CLOZAPINE [Concomitant]
  3. AMISULPRIDE [Concomitant]
  4. HALOPERIDOL [Concomitant]
  5. HYOSCINE HBR HYT [Concomitant]
  6. LISINOPRIL [Concomitant]
  7. ATROPINE [Concomitant]
  8. DILTIAZEM [Concomitant]
  9. METOPROLOL [Concomitant]
  10. FYBOGEL [Concomitant]
  11. SENNA [Concomitant]
  12. BECLOMETASONE [Concomitant]

REACTIONS (2)
  - DEEP VEIN THROMBOSIS [None]
  - PULMONARY EMBOLISM [None]
